FAERS Safety Report 8435831-4 (Version None)
Quarter: 2012Q2

REPORT INFORMATION
  Report Type: 
  Country: None (occurrence: None)
  Receive Date: 20120614
  Receipt Date: 20120605
  Transmission Date: 20120825
  Serious: Yes (Hospitalization)
  Sender: FDA-Public Use
  Company Number: FR-ASTRAZENECA-2012SE37888

PATIENT
  Age: 20444 Day
  Sex: Male

DRUGS (5)
  1. LASIX [Concomitant]
     Route: 048
  2. LOVENOX [Concomitant]
     Dosage: DAILY
     Route: 058
  3. ZOPICLONE [Concomitant]
     Route: 048
  4. NEXIUM [Suspect]
     Route: 048
     Dates: start: 20120107, end: 20120220
  5. POTASSIUM CHLORIDE [Concomitant]
     Route: 048

REACTIONS (2)
  - ECZEMA [None]
  - ANKLE FRACTURE [None]
